FAERS Safety Report 14917726 (Version 1)
Quarter: 2018Q2

REPORT INFORMATION
  Report Type: Spontaneous
  Country: US (occurrence: US)
  Receive Date: 20180521
  Receipt Date: 20180521
  Transmission Date: 20180711
  Serious: No
  Sender: FDA-Public Use
  Company Number: US-TEVA-2018-US-893157

PATIENT
  Sex: Female

DRUGS (2)
  1. CARBIDOPA/LEVODOPA [Concomitant]
     Active Substance: CARBIDOPA\LEVODOPA
     Indication: SEIZURE
     Route: 065
  2. AMANTADINE. [Suspect]
     Active Substance: AMANTADINE HYDROCHLORIDE
     Indication: SLEEP DISORDER
     Dosage: DOSE STRENGTH:  100
     Route: 065
     Dates: start: 20180510

REACTIONS (2)
  - Drug prescribing error [Unknown]
  - Reaction to excipient [Unknown]
